FAERS Safety Report 25878979 (Version 1)
Quarter: 2025Q4

REPORT INFORMATION
  Report Type: Spontaneous
  Country: EU (occurrence: EU)
  Receive Date: 20251003
  Receipt Date: 20251003
  Transmission Date: 20260117
  Serious: Yes (Other)
  Sender: AMGEN
  Company Number: EU-AMGEN-FRASP2025191943

PATIENT
  Age: 68 Year
  Sex: Female

DRUGS (6)
  1. XGEVA [Suspect]
     Active Substance: DENOSUMAB
     Indication: Invasive lobular breast carcinoma
     Dosage: UNK
     Route: 065
     Dates: start: 201508, end: 2017
  2. FLUOROURACIL [Concomitant]
     Active Substance: FLUOROURACIL
  3. ADRIAMYCIN [Concomitant]
     Active Substance: DOXORUBICIN HYDROCHLORIDE
  4. CYCLOPHOSPHAMIDE [Concomitant]
     Active Substance: CYCLOPHOSPHAMIDE
  5. ANASTROZOLE [Concomitant]
     Active Substance: ANASTROZOLE
  6. LETROZOLE [Concomitant]
     Active Substance: LETROZOLE
     Dosage: UNK
     Dates: start: 201508

REACTIONS (8)
  - Bone cancer metastatic [Unknown]
  - Metastatic gastric cancer [Recovering/Resolving]
  - Interstitial lung disease [Unknown]
  - Neuropathy peripheral [Unknown]
  - Helicobacter gastritis [Unknown]
  - Carbohydrate antigen 15-3 increased [Unknown]
  - Gastrooesophageal reflux disease [Unknown]
  - Dental care [Unknown]

NARRATIVE: CASE EVENT DATE: 20191201
